FAERS Safety Report 11923543 (Version 1)
Quarter: 2016Q1

REPORT INFORMATION
  Report Type: Spontaneous
  Country: US (occurrence: US)
  Receive Date: 20160118
  Receipt Date: 20160118
  Transmission Date: 20160526
  Serious: Yes (Other)
  Sender: FDA-Public Use
  Company Number: US-ASTRAZENECA-2016SE02698

PATIENT
  Sex: Male

DRUGS (1)
  1. BYDUREON [Suspect]
     Active Substance: EXENATIDE
     Indication: TYPE 2 DIABETES MELLITUS
     Dosage: 2MG, INJECT 1MG EVERY 7 DAYS BUT THE PATIENT WAS INJECTING HALF THE BYDUREON PEN (1 MG ONCE A WEEK)
     Route: 058

REACTIONS (4)
  - Blood glucose decreased [Unknown]
  - Intentional product misuse [Unknown]
  - Malaise [Unknown]
  - Loss of consciousness [Unknown]

NARRATIVE: CASE EVENT DATE: 20160110
